FAERS Safety Report 23089254 (Version 1)
Quarter: 2023Q4

REPORT INFORMATION
  Report Type: Spontaneous
  Country: US (occurrence: None)
  Receive Date: 20231019
  Receipt Date: 20231019
  Transmission Date: 20240110
  Serious: Yes (Hospitalization)
  Sender: FDA-Public Use
  Company Number: None

PATIENT
  Age: 67 Year
  Sex: Male

DRUGS (1)
  1. IRON DEXTRAN [Suspect]
     Active Substance: IRON DEXTRAN
     Dates: start: 20221114, end: 20221114

REACTIONS (6)
  - Heart rate increased [None]
  - Anaphylactic reaction [None]
  - Dyspnoea [None]
  - Hypotension [None]
  - Nausea [None]
  - Drug hypersensitivity [None]

NARRATIVE: CASE EVENT DATE: 20221114
